FAERS Safety Report 8426484-X (Version None)
Quarter: 2012Q2

REPORT INFORMATION
  Report Type: 
  Country: None (occurrence: None)
  Receive Date: 20120611
  Receipt Date: 20120531
  Transmission Date: 20120825
  Serious: Yes (Hospitalization, Other)
  Sender: FDA-Public Use
  Company Number: CO-AMGEN-COLCT2011017068

PATIENT
  Age: 50 Year
  Sex: Female

DRUGS (7)
  1. LEVOTHYROXINE SODIUM [Concomitant]
     Indication: THYROID DISORDER
     Dosage: 50 MG, UNK
  2. ETANERCEPT [Suspect]
     Indication: RHEUMATOID ARTHRITIS
     Dosage: 50 MG, QWK
     Route: 058
     Dates: start: 20090106
  3. METHOTREXATE [Suspect]
     Indication: RHEUMATOID ARTHRITIS
     Dosage: 6 CAPSULES EVERY 8 DAYS ORALLY (ALL IN ONE)
     Route: 048
     Dates: start: 20120106
  4. PREDNISOLONE [Concomitant]
     Indication: RHEUMATOID ARTHRITIS
     Dosage: 1 CAPSULE DAILY OF 5 MG ORALLY
     Route: 048
     Dates: start: 20090106
  5. ACETAMINOPHEN [Concomitant]
     Dosage: 500 MG, UNK
  6. DICLOFENAC SODIUM [Concomitant]
     Indication: INFLAMMATION
     Dosage: 1 CAPSULE OF 50 MG ONCE A DAY ORALLY
     Route: 048
     Dates: start: 20080101
  7. ALBUTEROL [Concomitant]
     Dosage: 100 ML, UNK

REACTIONS (4)
  - INCREASED UPPER AIRWAY SECRETION [None]
  - COUGH [None]
  - BACK PAIN [None]
  - ANAEMIA [None]
